FAERS Safety Report 24968473 (Version 2)
Quarter: 2025Q1

REPORT INFORMATION
  Report Type: Spontaneous
  Country: FR (occurrence: FR)
  Receive Date: 20250214
  Receipt Date: 20250317
  Transmission Date: 20250408
  Serious: Yes (Other)
  Sender: JOHNSON AND JOHNSON
  Company Number: FR-JNJFOC-20250213809

PATIENT
  Sex: Male
  Weight: 75 kg

DRUGS (4)
  1. RYBREVANT [Suspect]
     Active Substance: AMIVANTAMAB-VMJW
     Indication: Non-small cell lung cancer metastatic
     Dates: start: 20241226, end: 20250117
  2. RYBREVANT [Suspect]
     Active Substance: AMIVANTAMAB-VMJW
     Dates: end: 20250103
  3. PEMETREXED [Concomitant]
     Active Substance: PEMETREXED
     Dates: end: 20250103
  4. CARBOPLATIN [Concomitant]
     Active Substance: CARBOPLATIN
     Dates: end: 20250103

REACTIONS (6)
  - Metastasis [Unknown]
  - Right ventricular failure [Unknown]
  - Neutropenia [Unknown]
  - Thrombocytopenia [Unknown]
  - Respiratory distress [Unknown]
  - General physical health deterioration [Unknown]
